FAERS Safety Report 16701805 (Version 2)
Quarter: 2019Q3

REPORT INFORMATION
  Report Type: Spontaneous
  Country: BE (occurrence: BE)
  Receive Date: 20190814
  Receipt Date: 20190821
  Transmission Date: 20191004
  Serious: Yes (Hospitalization)
  Sender: FDA-Public Use
  Company Number: BE-BAXTER-2019BAX015466

PATIENT
  Age: 54 Year
  Sex: Female

DRUGS (5)
  1. NEULASTA [Suspect]
     Active Substance: PEGFILGRASTIM
     Indication: PRODUCT USED FOR UNKNOWN INDICATION
     Route: 058
  2. EPIRUBICIN [Concomitant]
     Active Substance: EPIRUBICIN
     Indication: INVASIVE DUCTAL BREAST CARCINOMA
     Route: 042
     Dates: start: 20190408, end: 20190520
  3. FLUVOXAMINE [Concomitant]
     Active Substance: FLUVOXAMINE
     Indication: DEPRESSION
     Route: 048
  4. ROACCUTANE [Concomitant]
     Active Substance: ISOTRETINOIN
     Indication: SKIN DISORDER
     Route: 048
  5. ENDOXAN 1000 MG - POUDRE POUR SOLUTION INJECTABLE [Suspect]
     Active Substance: CYCLOPHOSPHAMIDE
     Indication: INVASIVE DUCTAL BREAST CARCINOMA
     Route: 042
     Dates: start: 20190408, end: 20190520

REACTIONS (8)
  - Lung infiltration [Recovering/Resolving]
  - Drug interaction [Recovering/Resolving]
  - Leukocytosis [Recovering/Resolving]
  - Malaise [Recovering/Resolving]
  - Neutrophilia [Recovering/Resolving]
  - Pyrexia [Recovering/Resolving]
  - Alveolitis [Recovering/Resolving]
  - Acute interstitial pneumonitis [Recovering/Resolving]

NARRATIVE: CASE EVENT DATE: 20190530
